FAERS Safety Report 4745194-3 (Version None)
Quarter: 2005Q3

REPORT INFORMATION
  Report Type: 
  Country: None (occurrence: None)
  Receive Date: 20050815
  Receipt Date: 20050804
  Transmission Date: 20060218
  Serious: Yes (Other)
  Sender: FDA-Public Use
  Company Number: US-JNJFOC-20050802508

PATIENT
  Sex: Male

DRUGS (1)
  1. DURAGESIC-100 [Suspect]
     Dosage: ONE 100 UG/HR PATCH PLUS ONE 25 UG/HR PATCH
     Route: 062

REACTIONS (1)
  - PARKINSON'S DISEASE [None]
